FAERS Safety Report 10046708 (Version 2)
Quarter: 2014Q1

REPORT INFORMATION
  Report Type: Spontaneous
  Country: US (occurrence: US)
  Receive Date: 20140331
  Receipt Date: 20140331
  Transmission Date: 20141002
  Serious: Yes (Disabling)
  Sender: FDA-Public Use
  Company Number: US-GE HEALTHCARE MEDICAL DIAGNOSTICS-OSCN-PR-0701S-0033

PATIENT
  Age: 32 Year
  Sex: Male
  Weight: 73 kg

DRUGS (15)
  1. GADOLINIUM (UNSPECIFIED) [Suspect]
     Indication: MENINGOCOCCAL BACTERAEMIA
     Route: 042
     Dates: start: 20031216, end: 20031216
  2. MAGNEVIST [Suspect]
     Indication: MENINGOCOCCAL BACTERAEMIA
     Route: 042
     Dates: start: 20031216, end: 20031216
  3. MAGNEVIST [Suspect]
     Indication: PYREXIA
     Route: 042
     Dates: start: 20040115, end: 20040115
  4. MAGNEVIST [Suspect]
     Indication: OSTEOMYELITIS
     Route: 042
     Dates: start: 20040225, end: 20040225
  5. MAGNEVIST [Suspect]
     Indication: PYREXIA
     Route: 042
     Dates: start: 20040706, end: 20040706
  6. DARBEPOETIN [Concomitant]
  7. OXYCODONE [Concomitant]
  8. GABAPENTIN [Concomitant]
  9. CALCIUM ACETATE [Concomitant]
  10. WARFARIN [Concomitant]
  11. DECADRON [Concomitant]
  12. INSULIN [Concomitant]
  13. PAXIL [Concomitant]
  14. EPO [Concomitant]
  15. RENAGEL [Concomitant]

REACTIONS (1)
  - Nephrogenic systemic fibrosis [Not Recovered/Not Resolved]
